FAERS Safety Report 6517467-5 (Version None)
Quarter: 2009Q4

REPORT INFORMATION
  Report Type: 
  Country: None (occurrence: None)
  Receive Date: 20091224
  Receipt Date: 20091217
  Transmission Date: 20100525
  Serious: Yes (Other)
  Sender: FDA-Public Use
  Company Number: GB-RANBAXY-2009RR-29873

PATIENT
  Age: 17 Year
  Sex: Male

DRUGS (17)
  1. ACYCLOVIR [Suspect]
     Indication: PROPHYLAXIS
     Route: 065
  2. CO-TRIMOXAZOLE [Suspect]
     Indication: PROPHYLAXIS
     Route: 065
  3. ITRACONAZOLE [Suspect]
     Indication: PROPHYLAXIS
     Route: 065
  4. PREDNISOLONE [Suspect]
     Indication: BURKITT'S LYMPHOMA
     Route: 065
  5. TACROLIMUS [Suspect]
     Indication: IMMUNOSUPPRESSION
     Route: 065
  6. MERCAPTOPURINE [Suspect]
     Indication: BURKITT'S LYMPHOMA
     Route: 065
  7. THIOGUANINE [Suspect]
     Indication: BURKITT'S LYMPHOMA
  8. ARA-C [Suspect]
     Indication: BURKITT'S LYMPHOMA
     Route: 065
  9. DEXRAZOXANE [Suspect]
     Indication: DRUG USE FOR UNKNOWN INDICATION
     Route: 065
  10. DOXORUBICIN HCL [Suspect]
     Indication: BURKITT'S LYMPHOMA
     Route: 065
  11. METHOTREXATE [Suspect]
     Indication: BURKITT'S LYMPHOMA
     Route: 037
  12. RITUXIMAB [Suspect]
     Indication: BURKITT'S LYMPHOMA
     Dosage: 375 MG/M2, UNK
     Route: 065
  13. VINCRISTINE [Suspect]
     Indication: BURKITT'S LYMPHOMA
     Route: 065
  14. ETOPOSIDE [Suspect]
     Indication: BURKITT'S LYMPHOMA
     Route: 065
  15. CYCLOPHOSPHAMIDE [Concomitant]
  16. ONCOVIN [Concomitant]
  17. PREDNISONE [Concomitant]

REACTIONS (1)
  - NEUTROPENIA [None]
